FAERS Safety Report 9720780 (Version 2)
Quarter: 2013Q4

REPORT INFORMATION
  Report Type: Report from Study
  Country: NL (occurrence: NL)
  Receive Date: 20131129
  Receipt Date: 20131217
  Transmission Date: 20140711
  Serious: Yes (Death, Other)
  Sender: FDA-Public Use
  Company Number: PHHY2013NL138179

PATIENT
  Age: 74 Year
  Sex: Male

DRUGS (12)
  1. ZOMETA [Suspect]
     Indication: METASTASES TO BONE
     Dosage: 4 MG/ 100ML ONCE EVERY 4 WEEKS
     Route: 042
  2. ZOMETA [Suspect]
     Dosage: 4 MG/ 100ML ONCE EVERY 4 WEEKS
     Route: 042
     Dates: start: 20120202
  3. ZOMETA [Suspect]
     Dosage: 4 MG/ 100ML ONCE EVERY 4 WEEKS
     Route: 042
     Dates: start: 20131010
  4. ZOMETA [Suspect]
     Dosage: 4 MG/ 100ML ONCE EVERY 4 WEEKS
     Route: 042
     Dates: start: 20131106
  5. ASCAL [Concomitant]
     Dosage: UNK UKN, UNK
  6. ALFUZOSINE [Concomitant]
     Dosage: UNK UKN, UNK
  7. BICALUTAMIDE [Concomitant]
     Dosage: UNK UKN, UNK
  8. METOCLOPRAMIDE [Concomitant]
     Dosage: UNK UKN, UNK
  9. NEXIUM//ESOMEPRAZOLE SODIUM [Concomitant]
     Dosage: UNK UKN, UNK
  10. PRAMIPEXOLE [Concomitant]
     Dosage: UNK UKN, UNK
  11. PROMOCARD [Concomitant]
     Dosage: UNK UKN, UNK
  12. FIRMAGON//DEGARELIX [Concomitant]
     Dosage: UNK UKN, UNK

REACTIONS (2)
  - Prostate cancer [Fatal]
  - Metastasis [Unknown]
